FAERS Safety Report 12078500 (Version 1)
Quarter: 2016Q1

REPORT INFORMATION
  Report Type: Report from Study
  Country: US (occurrence: US)
  Receive Date: 20160216
  Receipt Date: 20160216
  Transmission Date: 20160526
  Serious: Yes (Other)
  Sender: FDA-Public Use
  Company Number: US-AMGEN-USASL2016017362

PATIENT
  Sex: Male
  Weight: 74.47 kg

DRUGS (1)
  1. PROCRIT [Suspect]
     Active Substance: ERYTHROPOIETIN
     Indication: NEPHROGENIC ANAEMIA
     Dosage: UNK UNK, QMO
     Route: 065

REACTIONS (12)
  - Constipation [Unknown]
  - Dry skin [Unknown]
  - Nocturia [Unknown]
  - Glaucoma [Unknown]
  - Chronic kidney disease [Unknown]
  - Weight increased [Unknown]
  - Osteoarthritis [Unknown]
  - Gouty arthritis [Unknown]
  - Gastritis [Unknown]
  - Carotid artery stenosis [Unknown]
  - Renal hypertension [Unknown]
  - Faeces hard [Unknown]
